FAERS Safety Report 25942179 (Version 1)
Quarter: 2025Q4

REPORT INFORMATION
  Report Type: Spontaneous
  Country: US (occurrence: US)
  Receive Date: 20251020
  Receipt Date: 20251020
  Transmission Date: 20260117
  Serious: Yes (Other)
  Sender: SANDOZ
  Company Number: US-002147023-NVSC2024US108151

PATIENT

DRUGS (2)
  1. PREDNISOLONE ACETATE [Suspect]
     Active Substance: PREDNISOLONE ACETATE
     Indication: Transplant rejection
     Dosage: UNK, 4 TIMES DAILY FOR 4 MONTHS
     Route: 061
  2. PREDNISOLONE ACETATE [Suspect]
     Active Substance: PREDNISOLONE ACETATE
     Dosage: UNK, TAPER BY 1 DROP PER MONTH TO ONCE DAILY USE
     Route: 061

REACTIONS (2)
  - Ocular hypertension [Unknown]
  - Off label use [Unknown]
